FAERS Safety Report 10923988 (Version 1)
Quarter: 2015Q1

REPORT INFORMATION
  Report Type: Spontaneous
  Country: US (occurrence: None)
  Receive Date: 20150316
  Receipt Date: 20150316
  Transmission Date: 20150721
  Serious: Yes (Death)
  Sender: FDA-Public Use
  Company Number: None

PATIENT
  Age: 20 Year
  Sex: Male
  Weight: 45.36 kg

DRUGS (3)
  1. TORADOL [Concomitant]
     Active Substance: KETOROLAC TROMETHAMINE
  2. ZOFRAN [Suspect]
     Active Substance: ONDANSETRON HYDROCHLORIDE
     Indication: NAUSEA
     Route: 060
     Dates: start: 20150312, end: 20150312
  3. DILAUDID [Concomitant]
     Active Substance: HYDROMORPHONE HYDROCHLORIDE

REACTIONS (11)
  - Abdominal distension [None]
  - Nausea [None]
  - Tachypnoea [None]
  - White blood cell count increased [None]
  - Blood creatinine increased [None]
  - Anaemia [None]
  - Granulocytosis [None]
  - Vomiting [None]
  - Tachycardia [None]
  - Hypertension [None]
  - Cardiac arrest [None]

NARRATIVE: CASE EVENT DATE: 20150312
